FAERS Safety Report 10155822 (Version 1)
Quarter: 2014Q2

REPORT INFORMATION
  Report Type: Spontaneous
  Country: FR (occurrence: FR)
  Receive Date: 20140506
  Receipt Date: 20140506
  Transmission Date: 20141212
  Serious: Yes (Hospitalization)
  Sender: FDA-Public Use
  Company Number: FR-TEVA-478058ISR

PATIENT
  Age: 58 Year
  Sex: Female

DRUGS (8)
  1. PACLITAXEL TEVA [Suspect]
     Dosage: 108 MILLIGRAM DAILY;
     Route: 042
     Dates: start: 20091207, end: 20100412
  2. ZOMETA [Concomitant]
     Dosage: ASSOCIATED WITH PACLITAXEL
  3. LYRICA [Concomitant]
     Dosage: USUAL TREATMENT
  4. DIFFU K [Concomitant]
     Dosage: USUAL TREATMENT
  5. INEXIUM [Concomitant]
     Dosage: USUAL TREATMENT
  6. STABLON [Concomitant]
     Dosage: USUAL TREATMENT
  7. OROCAL [Concomitant]
     Dosage: USUAL TREATMENT
  8. CREON [Concomitant]
     Dosage: USUAL TREATMENT

REACTIONS (6)
  - Lung consolidation [Recovering/Resolving]
  - Rales [Unknown]
  - Pyrexia [Unknown]
  - Hypocalcaemia [Unknown]
  - Lymphocytosis [Unknown]
  - Pulmonary alveolar haemorrhage [Unknown]
